FAERS Safety Report 9648065 (Version 1)
Quarter: 2013Q4

REPORT INFORMATION
  Report Type: Spontaneous
  Country: US (occurrence: US)
  Receive Date: 20131028
  Receipt Date: 20131028
  Transmission Date: 20140711
  Serious: Yes (Other)
  Sender: FDA-Public Use
  Company Number: US-PFIZER INC-2013307504

PATIENT
  Age: 62 Year
  Sex: Male
  Weight: 83.9 kg

DRUGS (6)
  1. CHANTIX [Suspect]
     Indication: SMOKING CESSATION THERAPY
     Dosage: 1 MG, 2X/DAY
     Dates: start: 20130913, end: 20131019
  2. AMILORIDE HYDROCHLORIDE [Suspect]
     Indication: BLOOD PRESSURE ABNORMAL
     Dosage: UNK
  3. AMILORIDE W/HYDROCHLOROTHIAZIDE [Suspect]
     Indication: BLOOD PRESSURE ABNORMAL
     Dosage: UNK
  4. SIMVASTATIN [Concomitant]
     Indication: BLOOD CHOLESTEROL ABNORMAL
     Dosage: 10 MG, 1X/DAY
  5. METOPROLOL TARTRATE [Concomitant]
     Indication: HYPERTENSION
     Dosage: 50 MG, 2X/DAY
  6. AMILORIDE [Concomitant]
     Indication: BLOOD PRESSURE ABNORMAL
     Dosage: 5 MG, 1X/DAY

REACTIONS (5)
  - Pharyngeal oedema [Recovering/Resolving]
  - Oral pain [Recovering/Resolving]
  - Lip swelling [Recovering/Resolving]
  - Drug intolerance [Unknown]
  - Gout [Unknown]
